FAERS Safety Report 6412877-9 (Version None)
Quarter: 2009Q4

REPORT INFORMATION
  Report Type: 
  Country: None (occurrence: None)
  Receive Date: 20091023
  Receipt Date: 20091009
  Transmission Date: 20100525
  Serious: Yes (Hospitalization, Other)
  Sender: FDA-Public Use
  Company Number: PHHY2008JP28208

PATIENT
  Sex: Female

DRUGS (10)
  1. NEORAL [Suspect]
     Indication: APLASIA PURE RED CELL
     Dosage: 100 MG/DAY
     Route: 048
     Dates: start: 20070216, end: 20070302
  2. PREDONINE [Concomitant]
     Indication: APLASIA PURE RED CELL
     Dosage: 5 MG
     Route: 048
  3. PREDONINE [Concomitant]
     Dosage: 20 MG
     Route: 048
     Dates: start: 20080125
  4. PREDONINE [Concomitant]
     Dosage: 5 MG DAILY
  5. AMBENONIUM CHLORIDE [Concomitant]
     Indication: MYASTHENIA GRAVIS
     Dosage: 15 MG DAILY
  6. PYRIDOSTIGMINE BROMIDE [Concomitant]
     Indication: MYASTHENIA GRAVIS
     Dosage: 180 MG DAILY
  7. LANSOPRAZOLE [Concomitant]
     Indication: GASTRIC ULCER
     Dosage: 30 MG
     Route: 048
     Dates: start: 20070125
  8. ADONA [Concomitant]
     Indication: MUCOSAL HAEMORRHAGE
     Dosage: 90 MG
     Route: 048
     Dates: start: 20070125
  9. METHYLCOBALAMIN [Concomitant]
     Indication: ANAEMIA VITAMIN B12 DEFICIENCY
     Dosage: 1500 MG
     Route: 048
     Dates: start: 20061201
  10. BACTRAMIN [Concomitant]
     Indication: PNEUMOCYSTIS JIROVECI PNEUMONIA
     Dosage: 1 G
     Route: 048
     Dates: start: 20070125

REACTIONS (12)
  - BLOOD GLUCOSE INCREASED [None]
  - DECREASED APPETITE [None]
  - DIABETIC KETOACIDOSIS [None]
  - GLUCOSE TOLERANCE IMPAIRED [None]
  - MALAISE [None]
  - PNEUMONIA [None]
  - POLYDIPSIA [None]
  - POLYURIA [None]
  - RENAL IMPAIRMENT [None]
  - THIRST [None]
  - TYPE 1 DIABETES MELLITUS [None]
  - URINE KETONE BODY PRESENT [None]
